FAERS Safety Report 10145955 (Version 1)
Quarter: 2014Q2

REPORT INFORMATION
  Report Type: Spontaneous
  Country: IT (occurrence: IT)
  Receive Date: 20140501
  Receipt Date: 20140501
  Transmission Date: 20141212
  Serious: Yes (Hospitalization)
  Sender: FDA-Public Use
  Company Number: IT-MYLANLABS-2014S1009244

PATIENT
  Age: 45 Year
  Sex: Male

DRUGS (3)
  1. CITALOPRAM [Suspect]
     Indication: PRODUCT USED FOR UNKNOWN INDICATION
     Dosage: 20 ML TOTAL
     Route: 048
     Dates: start: 20140208, end: 20140208
  2. ALPRAZOLAM [Suspect]
     Indication: PRODUCT USED FOR UNKNOWN INDICATION
     Dosage: 80 ML TOTAL
     Route: 048
     Dates: start: 20140208, end: 20140208
  3. EN [Suspect]
     Indication: PRODUCT USED FOR UNKNOWN INDICATION
     Dosage: 40 ML TOTAL
     Route: 048
     Dates: start: 20140208, end: 20140208

REACTIONS (4)
  - Drug abuse [Recovering/Resolving]
  - Sopor [Recovering/Resolving]
  - Intentional self-injury [Recovering/Resolving]
  - Overdose [Recovering/Resolving]
